FAERS Safety Report 10765885 (Version 1)
Quarter: 2015Q1

REPORT INFORMATION
  Report Type: Spontaneous
  Country: US (occurrence: None)
  Receive Date: 20150204
  Receipt Date: 20150204
  Transmission Date: 20150721
  Serious: Yes (Disabling, Other)
  Sender: FDA-Public Use
  Company Number: None

PATIENT
  Age: 67 Year
  Sex: Female
  Weight: 90.72 kg

DRUGS (1)
  1. LOSARTAN [Suspect]
     Active Substance: LOSARTAN
     Indication: HYPERTENSION
     Dosage: 100/25
     Route: 048
     Dates: start: 20141113, end: 20150128

REACTIONS (3)
  - Alopecia [None]
  - Swelling face [None]
  - Pain [None]

NARRATIVE: CASE EVENT DATE: 20141201
